FAERS Safety Report 6132961-7 (Version None)
Quarter: 2009Q1

REPORT INFORMATION
  Report Type: 
  Country: None (occurrence: None)
  Receive Date: 20090326
  Receipt Date: 20090323
  Transmission Date: 20090719
  Serious: Yes (Death)
  Sender: FDA-Public Use
  Company Number: PHEH2009US02927

PATIENT
  Age: 79 Year
  Sex: Female
  Weight: 48.073 kg

DRUGS (15)
  1. RECLAST [Suspect]
     Indication: OSTEOPOROSIS POSTMENOPAUSAL
     Dosage: 5 MG, ONCE YEARLY
     Route: 042
     Dates: start: 20081027
  2. MORPHINE [Concomitant]
     Dosage: 15 MG, QD AT HS, HOLD FOR SEDATION
  3. LEVOTHYROXINE [Concomitant]
     Indication: HYPOTHYROIDISM
     Dosage: 50 UG, QD
  4. HYDROMORPHONE HCL [Concomitant]
     Dosage: 2 MG, 1-2 TABS EVERY 4-6 HOURS PRN
  5. FOLIC ACID [Concomitant]
     Dosage: 1 MG, QD
  6. FERROUS SULFATE TAB [Concomitant]
     Dosage: 325 MG, QD
  7. DOXEPIN HCL [Concomitant]
     Dosage: 150 MG, QHS PRN
  8. METOCLOPRAMIDE [Concomitant]
     Dosage: 10 MG, TID BEFORE MEALS
  9. PROPRANOLOL [Concomitant]
     Dosage: 40 MG, BID
  10. OMEPRAZOLE [Concomitant]
     Dosage: 20 MG, BID
  11. PREDNISONE [Concomitant]
     Dosage: 15 MG, QD
  12. CALCIUM WITH VITAMIN D [Concomitant]
     Dosage: 1 TAB BID
  13. METHOTREXATE [Concomitant]
     Dosage: 2.5 MG, 6 TABS ONCE WEEKLY ON MONDAY
  14. BUPROPION HCL [Concomitant]
     Dosage: 1 TAB Q 4TH DAY QAM
  15. LISINOPRIL [Concomitant]
     Dosage: 10 MG, QD

REACTIONS (5)
  - BACK PAIN [None]
  - CONDITION AGGRAVATED [None]
  - DEATH [None]
  - DYSSTASIA [None]
  - FALL [None]
